FAERS Safety Report 23700996 (Version 1)
Quarter: 2024Q2

REPORT INFORMATION
  Report Type: Spontaneous
  Country: US (occurrence: US)
  Receive Date: 20240403
  Receipt Date: 20240403
  Transmission Date: 20240716
  Serious: No
  Sender: FDA-Public Use
  Company Number: US-TORRENT-00013488

PATIENT
  Sex: Male

DRUGS (1)
  1. TADALAFIL [Suspect]
     Active Substance: TADALAFIL
     Indication: Product used for unknown indication
     Dosage: PRESCRIBED 20MG AND SOMETIMES HE GETS PRESCRIBED 5MG
     Route: 065

REACTIONS (2)
  - Dizziness [Unknown]
  - Incorrect dose administered [Unknown]
